FAERS Safety Report 4949389-5 (Version None)
Quarter: 2006Q1

REPORT INFORMATION
  Report Type: 
  Country: None (occurrence: None)
  Receive Date: 20060321
  Receipt Date: 20060307
  Transmission Date: 20060701
  Serious: Yes (Disabling)
  Sender: FDA-Public Use
  Company Number: CZ-AMGEN-UK171578

PATIENT
  Age: 72 Year
  Sex: Female
  Weight: 71 kg

DRUGS (1)
  1. MIMPARA [Suspect]
     Indication: HYPERPARATHYROIDISM SECONDARY
     Route: 065

REACTIONS (4)
  - MYALGIA [None]
  - NAUSEA [None]
  - SHOULDER PAIN [None]
  - VOMITING [None]
